FAERS Safety Report 20093158 (Version 1)
Quarter: 2021Q4

REPORT INFORMATION
  Report Type: Spontaneous
  Country: US (occurrence: US)
  Receive Date: 20211120
  Receipt Date: 20211120
  Transmission Date: 20220303
  Serious: No
  Sender: FDA-Public Use
  Company Number: US-009507513-2111USA004376

PATIENT
  Sex: Female

DRUGS (3)
  1. KEYTRUDA [Suspect]
     Active Substance: PEMBROLIZUMAB
     Dosage: UNK
     Dates: end: 202111
  2. LENVATINIB MESYLATE [Suspect]
     Active Substance: LENVATINIB MESYLATE
     Dosage: 20 MG, DAILY
     Dates: start: 20210914, end: 20210927
  3. LENVATINIB MESYLATE [Suspect]
     Active Substance: LENVATINIB MESYLATE
     Dosage: 14MG DAILY
     Dates: start: 20210927

REACTIONS (7)
  - Hypotension [Unknown]
  - Pollakiuria [Unknown]
  - Oral discomfort [Unknown]
  - Thyroid hormones increased [Unknown]
  - Hair colour changes [Unknown]
  - Muscle spasms [Unknown]
  - Anaemia [Unknown]

NARRATIVE: CASE EVENT DATE: 20210914
